FAERS Safety Report 15945607 (Version 3)
Quarter: 2019Q1

REPORT INFORMATION
  Report Type: Report from Study
  Country: DE (occurrence: DE)
  Receive Date: 20190211
  Receipt Date: 20190306
  Transmission Date: 20190417
  Serious: Yes (Hospitalization)
  Sender: FDA-Public Use
  Company Number: DE-ACCORD-105839

PATIENT
  Age: 65 Year
  Sex: Male
  Weight: 104 kg

DRUGS (22)
  1. LEVEMIR [Concomitant]
     Active Substance: INSULIN DETEMIR
     Dosage: 10 IU, ALSO RECEIVED  24 IU.
     Route: 058
  2. PANTENOL [Concomitant]
     Dosage: MOUTHWASH, DOSE IS 3
     Route: 065
  3. ASPRIN [Concomitant]
     Active Substance: ASPIRIN
     Dosage: DOSE IS 1
     Route: 065
  4. AMARYL [Concomitant]
     Active Substance: GLIMEPIRIDE
     Route: 065
  5. VICTOZA [Concomitant]
     Active Substance: LIRAGLUTIDE
     Dosage: DAILY DOSE IS 1.2 MG EVERY DAY
     Route: 058
  6. METOPROLOL. [Concomitant]
     Active Substance: METOPROLOL
     Dosage: 47.5 MG MILLIGRAM(S) EVERY DAY
     Route: 065
  7. TOREM [Concomitant]
     Active Substance: TORSEMIDE
     Dosage: 0.5 DOSAGE FORM TWICE A DAY
     Route: 065
  8. BELOC-ZOK [Concomitant]
     Active Substance: METOPROLOL SUCCINATE
     Indication: HYPERTENSION
     Route: 048
     Dates: start: 20130919
  9. PANTOZOL [Concomitant]
     Active Substance: PANTOPRAZOLE SODIUM
     Dosage: DAILY DOSE IS 80 MG  EVERY DAY, ?ALSO RECEIVED 40 MG EVERY DAY
     Route: 042
  10. DIGITOXIN [Concomitant]
     Active Substance: DIGITOXIN
     Dosage: DOSE:1
     Route: 065
  11. LEVEMIR [Concomitant]
     Active Substance: INSULIN DETEMIR
     Dosage: DOSE: 24 IU
     Route: 058
  12. IRINOTECAN [Suspect]
     Active Substance: IRINOTECAN
     Indication: COLORECTAL CANCER
     Dosage: DAILY DOSE IS 422 MG MILLGRAM(S) EVERY 3 WEEKS
     Route: 042
     Dates: start: 20130919, end: 20131010
  13. INNOHEP [Concomitant]
     Active Substance: TINZAPARIN SODIUM
     Route: 058
  14. GLIBENCLAMIDE [Concomitant]
     Active Substance: GLYBURIDE
     Indication: DIABETES MELLITUS
     Route: 048
  15. FUROSEMIDE. [Concomitant]
     Active Substance: FUROSEMIDE
     Dosage: DAILY DOSE IS 80 MG EVERY DAY
     Route: 065
  16. FENTANYL. [Concomitant]
     Active Substance: FENTANYL
     Dosage: PATCH
     Route: 065
  17. RAMIPRIL. [Concomitant]
     Active Substance: RAMIPRIL
     Indication: HYPERTENSION
     Route: 048
     Dates: start: 20130919
  18. AVASTIN [Suspect]
     Active Substance: BEVACIZUMAB
     Indication: COLORECTAL CANCER METASTATIC
     Dosage: LAST DOSE PRIOR TO THE EVENT WAS GIVEN ON 10-OCT-2013
     Route: 042
     Dates: start: 20130919, end: 20131010
  19. XELODA [Suspect]
     Active Substance: CAPECITABINE
     Indication: COLORECTAL CANCER
     Dosage: DOSE IS 2, 3300 TO 2500 MG
     Route: 048
     Dates: start: 20130919, end: 20131003
  20. SPIRONOLACTONE. [Concomitant]
     Active Substance: SPIRONOLACTONE
     Dosage: DAILY DOSE IS 50 MG EVERY DAY
     Route: 065
  21. TEPILTA [Concomitant]
     Active Substance: ALUMINUM HYDROXIDE\MAGNESIUM OXIDE\OXETHAZAINE
     Dosage: 1 DOSAGE FORM (DOSE IS 3)
     Route: 065
  22. INSULIN [Concomitant]
     Active Substance: INSULIN NOS

REACTIONS (7)
  - Stomatitis [Recovered/Resolved]
  - Dysphagia [Recovered/Resolved]
  - Hyperkalaemia [Recovered/Resolved]
  - General physical health deterioration [Recovered/Resolved]
  - Pancytopenia [Recovered/Resolved]
  - Acute kidney injury [Recovered/Resolved]
  - Diarrhoea [Recovered/Resolved]

NARRATIVE: CASE EVENT DATE: 201310
